FAERS Safety Report 4301436-X (Version None)
Quarter: 2004Q1

REPORT INFORMATION
  Report Type: 
  Country: None (occurrence: None)
  Receive Date: 20040219
  Receipt Date: 20040205
  Transmission Date: 20041129
  Serious: Yes (Death)
  Sender: FDA-Public Use
  Company Number: JP-JNJFOC-20040203208

PATIENT
  Age: 53 Year
  Sex: Female

DRUGS (7)
  1. FENTANYL [Suspect]
     Indication: CANCER PAIN
     Dosage: 2.5 MG, 1 IN 3 DAY, TRANSDERMAL
     Route: 062
     Dates: start: 20030603, end: 20030619
  2. MORPHINE [Concomitant]
  3. PROCHLORPERAZINE [Concomitant]
  4. HALOPERIDOL [Concomitant]
  5. BROMAZEPAM (BROMAZEPAM) [Concomitant]
  6. BISACODYL (BISACODYL) [Concomitant]
  7. CLOXAZOLAM (CLOXAZOLAM) [Concomitant]

REACTIONS (1)
  - CACHEXIA [None]
